FAERS Safety Report 4797948-5 (Version None)
Quarter: 2005Q3

REPORT INFORMATION
  Report Type: 
  Country: None (occurrence: None)
  Receive Date: 20050929
  Receipt Date: 20050825
  Transmission Date: 20060218
  Serious: No
  Sender: FDA-Public Use
  Company Number: 05P-163-0309320-00

PATIENT
  Age: 84 Year
  Sex: Female
  Weight: 63.9572 kg

DRUGS (6)
  1. HUMIRA [Suspect]
     Indication: RHEUMATOID ARTHRITIS
     Dosage: 40 MG, 1 IN 2 WK, SUBCUTANEOUS; SEE IMAGE
     Route: 058
     Dates: start: 20030401, end: 20050101
  2. HUMIRA [Suspect]
     Indication: RHEUMATOID ARTHRITIS
     Dosage: 40 MG, 1 IN 2 WK, SUBCUTANEOUS; SEE IMAGE
     Route: 058
     Dates: start: 20050201
  3. LISINOPRIL [Concomitant]
  4. LORATADINE [Concomitant]
  5. ESTROGENS CONJUGATED [Concomitant]
  6. HYDROCODONE [Concomitant]

REACTIONS (1)
  - GINGIVAL INFECTION [None]
